FAERS Safety Report 17181475 (Version 1)
Quarter: 2019Q4

REPORT INFORMATION
  Report Type: Report from Study
  Country: None (occurrence: CO)
  Receive Date: 20191220
  Receipt Date: 20191220
  Transmission Date: 20200122
  Serious: Yes (Death, Hospitalization, Other)
  Sender: FDA-Public Use
  Company Number: CO-ABBVIE-17K-036-3061519-00

PATIENT
  Age: 79 Year
  Sex: Female
  Weight: 57 kg

DRUGS (1)
  1. IMBRUVICA [Suspect]
     Active Substance: IBRUTINIB
     Indication: CHRONIC LYMPHOCYTIC LEUKAEMIA
     Route: 048
     Dates: start: 20160726, end: 20170108

REACTIONS (6)
  - Altered state of consciousness [Unknown]
  - Arthralgia [Not Recovered/Not Resolved]
  - Myocardial infarction [Fatal]
  - Infarction [Unknown]
  - Spinal pain [Not Recovered/Not Resolved]
  - Urinary tract infection [Fatal]

NARRATIVE: CASE EVENT DATE: 20160730
